FAERS Safety Report 6226991-4 (Version None)
Quarter: 2009Q2

REPORT INFORMATION
  Report Type: 
  Country: None (occurrence: None)
  Receive Date: 20090612
  Receipt Date: 20090605
  Transmission Date: 20091009
  Serious: Yes (Hospitalization)
  Sender: FDA-Public Use
  Company Number: BR-ASTRAZENECA-2009UW14697

PATIENT
  Age: 49 Year
  Sex: Female

DRUGS (4)
  1. SELOZOK [Suspect]
     Indication: HYPERTENSION
     Route: 048
     Dates: start: 20030101, end: 20080101
  2. SELOZOK [Suspect]
     Route: 048
     Dates: start: 20080101
  3. CAPTOPRIL [Concomitant]
     Route: 048
     Dates: start: 20030101, end: 20080101
  4. CAPTOPRIL [Concomitant]
     Route: 048
     Dates: start: 20080101

REACTIONS (1)
  - BLOOD PRESSURE INCREASED [None]
